FAERS Safety Report 19178244 (Version 1)
Quarter: 2021Q2

REPORT INFORMATION
  Report Type: Spontaneous
  Country: CN (occurrence: CN)
  Receive Date: 20210426
  Receipt Date: 20210426
  Transmission Date: 20210717
  Serious: Yes (Hospitalization)
  Sender: FDA-Public Use
  Company Number: CN-LUPIN PHARMACEUTICALS INC.-2021-05184

PATIENT
  Age: 57 Year
  Sex: Male

DRUGS (4)
  1. HEPARIN [Concomitant]
     Active Substance: HEPARIN SODIUM
     Indication: FAT EMBOLISM
     Dosage: UNK
     Route: 065
  2. ALBUMIN [Suspect]
     Active Substance: ALBUMIN HUMAN
     Indication: FAT EMBOLISM
     Dosage: UNK
     Route: 065
  3. METHYLPREDNISOLONE. [Suspect]
     Active Substance: METHYLPREDNISOLONE
     Indication: FAT EMBOLISM
     Dosage: 500 MILLIGRAM FOR 1 DAY
     Route: 042
  4. METHYLPREDNISOLONE. [Suspect]
     Active Substance: METHYLPREDNISOLONE
     Dosage: 1 GRAM FOR 2 DAYS
     Route: 042

REACTIONS (1)
  - Drug ineffective [Unknown]
